FAERS Safety Report 25700255 (Version 3)
Quarter: 2025Q4

REPORT INFORMATION
  Report Type: Spontaneous
  Country: US (occurrence: US)
  Receive Date: 20250819
  Receipt Date: 20251022
  Transmission Date: 20260118
  Serious: No
  Sender: ARCUTIS
  Company Number: US-ARCUTIS BIOTHERAPEUTICS INC-2025AER000601

PATIENT

DRUGS (7)
  1. ZORYVE [Interacting]
     Active Substance: ROFLUMILAST
     Indication: Eczema
     Dosage: UNK, QD
     Route: 061
     Dates: start: 202501, end: 20250921
  2. ZORYVE [Interacting]
     Active Substance: ROFLUMILAST
     Indication: Dermatitis atopic
  3. ZORYVE [Interacting]
     Active Substance: ROFLUMILAST
     Indication: Psoriasis
  4. ZORYVE [Interacting]
     Active Substance: ROFLUMILAST
     Indication: Onychomycosis
  5. KETOCONAZOLE [Interacting]
     Active Substance: KETOCONAZOLE
     Indication: Product used for unknown indication
     Dosage: UNK
     Route: 065
  6. TACROLIMUS [Concomitant]
     Active Substance: TACROLIMUS
     Indication: Alopecia
     Dosage: UNK
  7. CUTEMOL [Concomitant]
     Indication: Product used for unknown indication

REACTIONS (17)
  - Thinking abnormal [Unknown]
  - Depression [Unknown]
  - Fungal rhinitis [Unknown]
  - Ocular hyperaemia [Unknown]
  - Epistaxis [Unknown]
  - Intraocular pressure increased [Unknown]
  - Dizziness [Unknown]
  - Nasal congestion [Unknown]
  - Rhinorrhoea [Unknown]
  - Erythema of eyelid [Unknown]
  - Visual impairment [Unknown]
  - Headache [Unknown]
  - Nausea [Unknown]
  - Drug interaction [Unknown]
  - Accidental exposure to product [Unknown]
  - Off label use [Unknown]
  - Therapeutic response unexpected [Unknown]

NARRATIVE: CASE EVENT DATE: 20250101
